FAERS Safety Report 5220499-0 (Version None)
Quarter: 2007Q1

REPORT INFORMATION
  Report Type: 
  Country: None (occurrence: None)
  Receive Date: 20070125
  Receipt Date: 20070125
  Transmission Date: 20070707
  Serious: Yes (Hospitalization)
  Sender: FDA-Public Use
  Company Number: None

PATIENT
  Age: 7 Year
  Sex: Male
  Weight: 27.8962 kg

DRUGS (2)
  1. RITALIN [Suspect]
     Dosage: PO X 1
     Route: 048
  2. BENADRYL [Suspect]
     Dosage: PO X 1
     Route: 048

REACTIONS (2)
  - AGITATION [None]
  - RESTLESSNESS [None]
